FAERS Safety Report 20168691 (Version 1)
Quarter: 2021Q4

REPORT INFORMATION
  Report Type: Other
  Country: US (occurrence: None)
  Receive Date: 20211210
  Receipt Date: 20211210
  Transmission Date: 20220304
  Serious: Yes (Hospitalization)
  Sender: FDA-Public Use
  Company Number: US-ROCHE-2971687

PATIENT
  Sex: Female

DRUGS (3)
  1. XELODA [Suspect]
     Active Substance: CAPECITABINE
     Indication: Breast cancer metastatic
     Dosage: TAKE 3 TABLET(S) BY MOUTH EVERY MORNING AND TAKE 3 TABLET(S) BY MOUTH EVERY EVENING14 DAYS ON 7 DAYS
     Route: 048
  2. XELODA [Suspect]
     Active Substance: CAPECITABINE
     Indication: Breast cancer female
  3. IBRANCE [Concomitant]
     Active Substance: PALBOCICLIB

REACTIONS (2)
  - Pulmonary thrombosis [Unknown]
  - Cerebrovascular accident [Unknown]
